FAERS Safety Report 6074358-4 (Version None)
Quarter: 2009Q1

REPORT INFORMATION
  Report Type: 
  Country: None (occurrence: None)
  Receive Date: 20090211
  Receipt Date: 20090202
  Transmission Date: 20090719
  Serious: Yes (Other)
  Sender: FDA-Public Use
  Company Number: SI-PFIZER INC-2009164177

PATIENT

DRUGS (4)
  1. SILDENAFIL CITRATE [Suspect]
     Dosage: 400 MG, SINGLE
     Dates: start: 20070101
  2. QUETIAPINE [Concomitant]
  3. MIRTAZAPINE [Concomitant]
  4. VALPROATE SODIUM [Concomitant]

REACTIONS (4)
  - AGGRESSION [None]
  - AGITATION [None]
  - DEPRESSION [None]
  - PARANOIA [None]
